FAERS Safety Report 17599347 (Version 1)
Quarter: 2020Q1

REPORT INFORMATION
  Report Type: Spontaneous
  Country: US (occurrence: US)
  Receive Date: 20200330
  Receipt Date: 20200330
  Transmission Date: 20200409
  Serious: No
  Sender: FDA-Public Use
  Company Number: None

PATIENT
  Age: 73 Year
  Sex: Male
  Weight: 49.05 kg

DRUGS (22)
  1. LUPRON [Suspect]
     Active Substance: LEUPROLIDE ACETATE
     Indication: LUNG CARCINOMA CELL TYPE UNSPECIFIED STAGE 0
     Dosage: ?          OTHER FREQUENCY:EVERY 3 MONTHS;?
     Route: 030
     Dates: start: 20190614, end: 20200330
  2. POLYETHYLENE GLYCOL, ORAL [Concomitant]
  3. ASPIRIN 81 MG, ORAL [Concomitant]
  4. BICALUTAMIDE, 50 MG, ORAL [Concomitant]
  5. LUPRON DEPOT 22.5MG, ORAL [Concomitant]
  6. DIAZEPAM, 5MG, ORAL [Concomitant]
  7. DONEPEZIL 5 MG, ORAL [Concomitant]
  8. ESCITALOPRAM 10 MG, ORAL [Concomitant]
  9. CLONIDINE 0.3 MG, ORAL [Concomitant]
  10. DRONABINOL 2.5 MG, ORAL [Concomitant]
  11. MEGESTROL 625 MG/5ML, ORAL [Concomitant]
  12. BUSPIRONE, 5 MG, ORAL [Concomitant]
  13. LEVETIRACETAM, 750 MG, ORAL [Concomitant]
  14. LYRICA 75 MG, ORAL [Concomitant]
  15. HYDROXYCHLOROQUINE, ORAL [Concomitant]
  16. TEMAZEPAM 15 MG, ORAL [Concomitant]
  17. MEGESTROL 40MG, ORAL [Concomitant]
  18. ELIGARD 22.5MG, SQ [Concomitant]
     Dates: start: 20191215, end: 20191216
  19. TAMSULOSIN 0.4 MG, ORAL [Concomitant]
  20. SENNOSIDES - DOCUSATE 8.6/50 MG, ORAL [Concomitant]
  21. CIPROFLOXACIN 750MG, ORAL [Concomitant]
  22. ELIGARD 45MG, SQ [Concomitant]
     Dates: start: 20190614, end: 20190617

REACTIONS (1)
  - Hospice care [None]

NARRATIVE: CASE EVENT DATE: 20200330
